FAERS Safety Report 5489293-X (Version None)
Quarter: 2007Q4

REPORT INFORMATION
  Report Type: 
  Country: None (occurrence: None)
  Receive Date: 20071005
  Receipt Date: 20070627
  Transmission Date: 20080405
  Serious: No
  Sender: FDA-Public Use
  Company Number: PHEH2007US09372

PATIENT
  Sex: Male

DRUGS (3)
  1. TEKTURNA [Suspect]
     Indication: HYPERTENSION
     Dosage: 150 MG, QD, ORAL
     Route: 048
  2. BENICAR HCT (HYDROCHLOROTHIAZIDE, OLMESARTAN MEDOXOMIL) [Concomitant]
  3. TOPROL-XL [Concomitant]

REACTIONS (2)
  - ASTHENIA [None]
  - DYSPNOEA [None]
